FAERS Safety Report 11753337 (Version 1)
Quarter: 2015Q4

REPORT INFORMATION
  Report Type: Spontaneous
  Country: US (occurrence: None)
  Receive Date: 20151117
  Receipt Date: 20151117
  Transmission Date: 20160304
  Serious: No
  Sender: FDA-Public Use
  Company Number: None

PATIENT
  Age: 41 Year
  Sex: Female

DRUGS (1)
  1. HYQVIA [Suspect]
     Active Substance: HUMAN IMMUNOGLOBULIN G\HYALURONIDASE RECOMBINANT HUMAN
     Route: 058
     Dates: start: 20151111

REACTIONS (5)
  - Pain in extremity [None]
  - Neck pain [None]
  - Local swelling [None]
  - Intervertebral disc protrusion [None]
  - Hypoaesthesia [None]

NARRATIVE: CASE EVENT DATE: 20150501
